FAERS Safety Report 9644966 (Version 1)
Quarter: 2013Q4

REPORT INFORMATION
  Report Type: Spontaneous
  Country: US (occurrence: US)
  Receive Date: 20131025
  Receipt Date: 20131025
  Transmission Date: 20140711
  Serious: No
  Sender: FDA-Public Use
  Company Number: US-PFIZER INC-2013302345

PATIENT
  Age: 43 Year
  Sex: Female
  Weight: 74.83 kg

DRUGS (4)
  1. PRISTIQ [Suspect]
     Indication: DEPRESSION
     Dosage: 50 MG, 1X/DAY
     Route: 048
  2. PRISTIQ [Suspect]
     Indication: ANXIETY
     Dosage: 100 MG, 1X/DAY
     Route: 048
     Dates: end: 201310
  3. PRISTIQ [Suspect]
     Dosage: 50 MG(CUTTING 100MG TABLET INTO HALF), 1X/DAY
     Route: 048
     Dates: start: 201310, end: 201310
  4. PRISTIQ [Suspect]
     Dosage: 100 MG, 1X/DAY
     Route: 048
     Dates: start: 201310

REACTIONS (5)
  - Off label use [Unknown]
  - Wrong technique in drug usage process [Unknown]
  - Nausea [Unknown]
  - Dizziness [Unknown]
  - Malaise [Unknown]
